FAERS Safety Report 8567731 (Version 3)
Quarter: 2013Q1

REPORT INFORMATION
  Report Type: Spontaneous
  Country: US (occurrence: US)
  Receive Date: 20120517
  Receipt Date: 20130306
  Transmission Date: 20140127
  Serious: Yes (Hospitalization, Other)
  Sender: FDA-Public Use
  Company Number: US-ELI_LILLY_AND_COMPANY-US201108007390

PATIENT
  Sex: Female

DRUGS (15)
  1. FORTEO [Suspect]
     Indication: OSTEOPOROSIS
     Dosage: 20 UG, QD
     Dates: start: 20110505
  2. FORTEO [Suspect]
     Dosage: 20 UG, QD
  3. FORTEO [Suspect]
     Dosage: 20 UG, QD
  4. FORTEO [Suspect]
     Dosage: 20 UG, QD
  5. AGGRENOX [Concomitant]
     Indication: CEREBROVASCULAR ACCIDENT
     Dosage: UNK, BID
  6. VITAMIN D3 [Concomitant]
  7. CLONIDINE [Concomitant]
     Dosage: UNK, BID
  8. LORATADINE [Concomitant]
     Dosage: 10 MG, QD
  9. OMEPRAZOLE [Concomitant]
     Dosage: 20 MG, QD
  10. METOPROLOL [Concomitant]
     Dosage: 100 MG, QD
  11. ALOPURINOL [Concomitant]
     Dosage: 50 MG, QD
  12. TRAZODONE [Concomitant]
     Dosage: 50 MG, QD
  13. SULFAMETHIZOLE [Concomitant]
     Dosage: 0.5 DF, QD
  14. COLCRYS [Concomitant]
  15. PANTOPRAZOLE [Concomitant]

REACTIONS (26)
  - Cerebrovascular accident [Unknown]
  - Renal failure [Unknown]
  - Transient ischaemic attack [Unknown]
  - Heart rate increased [Recovered/Resolved]
  - Blood pressure increased [Recovered/Resolved]
  - Macular degeneration [Unknown]
  - Onychomadesis [Unknown]
  - Skin disorder [Unknown]
  - Dry skin [Unknown]
  - Skin injury [Unknown]
  - Hypoaesthesia [Unknown]
  - Gout [Unknown]
  - Eye disorder [Unknown]
  - Visual field defect [Unknown]
  - Mental impairment [Unknown]
  - Diarrhoea [Unknown]
  - Malaise [Unknown]
  - Pain [Unknown]
  - Nervous system disorder [Unknown]
  - Dyspnoea [Unknown]
  - Fall [Unknown]
  - Asthenia [Unknown]
  - Bursitis [Unknown]
  - Pulmonary oedema [Unknown]
  - Bladder mass [Unknown]
  - Chronic obstructive pulmonary disease [Unknown]
